FAERS Safety Report 25688803 (Version 1)
Quarter: 2025Q3

REPORT INFORMATION
  Report Type: Report from Study
  Country: US (occurrence: US)
  Receive Date: 20250818
  Receipt Date: 20250818
  Transmission Date: 20251020
  Serious: Yes (Life-Threatening, Hospitalization, Other)
  Sender: ALEXION PHARMACEUTICALS
  Company Number: US-AstraZeneca-CH-00931409A

PATIENT
  Sex: Female

DRUGS (1)
  1. DAPAGLIFLOZIN [Suspect]
     Active Substance: DAPAGLIFLOZIN
     Route: 065

REACTIONS (14)
  - Cardiac failure [Unknown]
  - Myocardial infarction [Unknown]
  - Hypertension [Unknown]
  - Ejection fraction decreased [Unknown]
  - Artery dissection [Unknown]
  - Diabetes mellitus [Unknown]
  - Product use issue [Unknown]
  - Memory impairment [Unknown]
  - Gait disturbance [Unknown]
  - Balance disorder [Unknown]
  - Confusional state [Unknown]
  - Chest pain [Unknown]
  - Pain in extremity [Unknown]
  - Headache [Unknown]
